FAERS Safety Report 7968951-9 (Version None)
Quarter: 2011Q4

REPORT INFORMATION
  Report Type: 
  Country: None (occurrence: None)
  Receive Date: 20111208
  Receipt Date: 20111124
  Transmission Date: 20120403
  Serious: Yes (Hospitalization)
  Sender: FDA-Public Use
  Company Number: 1000025759

PATIENT
  Age: 61 Year
  Sex: Female

DRUGS (10)
  1. ESCITALOPRAM OXALATE [Suspect]
     Dosage: (280 MG,ONCE),ORAL
     Route: 048
     Dates: start: 20110430, end: 20110430
  2. TEGRETOL [Suspect]
     Dosage: (1800 MG,ONCE),ORAL
     Route: 048
     Dates: start: 20110430, end: 20110430
  3. ISOPTIN (VERAPAMIL HYDROCHLORIDE)(VERAPAMIL HYDROCHLORIDE) [Concomitant]
  4. ACETYLSALICYLIC ACID (ACETYLSALICYLIC [Concomitant]
  5. LENDORMIN(BROTIZOLAM)(0.25 MILLIGRAM, TABLETS) [Suspect]
     Dosage: (0.25 MG,ONCE),ORAL
     Route: 048
     Dates: start: 20110430, end: 20110430
  6. PRAZEPAM [Suspect]
     Dosage: (150 MG,ONCE),ORAL
     Route: 048
     Dates: start: 20110430, end: 20110430
  7. ATENOLOL [Concomitant]
  8. METFORAL (METFORMIN HYDROCHLORIDE)(METFORMIN HYDROCHLORIDE) [Concomitant]
  9. SIMVASTATIN [Concomitant]
  10. TAVOR (LORAZEPAM) (LORAZEPAM) [Concomitant]

REACTIONS (6)
  - SOCIAL AVOIDANT BEHAVIOUR [None]
  - FEELING ABNORMAL [None]
  - CYCLOTHYMIC DISORDER [None]
  - AFFECTIVE DISORDER [None]
  - MULTIPLE DRUG OVERDOSE INTENTIONAL [None]
  - TOXICITY TO VARIOUS AGENTS [None]
